FAERS Safety Report 21212955 (Version 1)
Quarter: 2022Q3

REPORT INFORMATION
  Report Type: Spontaneous
  Country: US (occurrence: None)
  Receive Date: 20220815
  Receipt Date: 20220815
  Transmission Date: 20221027
  Serious: Yes (Life-Threatening, Other)
  Sender: FDA-Public Use
  Company Number: None

PATIENT
  Age: 91 Year
  Sex: Female

DRUGS (7)
  1. PAXLOVID [Suspect]
     Active Substance: NIRMATRELVIR\RITONAVIR
     Indication: COVID-19
     Dosage: OTHER QUANTITY : 2 TABLET(S);?FREQUENCY : TWICE A DAY;?
     Route: 048
     Dates: start: 20220813, end: 20220814
  2. OXYGEN [Concomitant]
     Active Substance: OXYGEN
  3. ELIQUIS [Concomitant]
     Active Substance: APIXABAN
  4. LISINOPRIL [Concomitant]
  5. CARVEDILOL [Concomitant]
  6. LEVOTHYROXINE [Concomitant]
     Active Substance: LEVOTHYROXINE
  7. vitamin/minerals [Concomitant]

REACTIONS (6)
  - Diarrhoea [None]
  - Asthenia [None]
  - Hypersomnia [None]
  - Hair colour changes [None]
  - Chromaturia [None]
  - Liver disorder [None]

NARRATIVE: CASE EVENT DATE: 20220813
